FAERS Safety Report 9768559 (Version 2)
Quarter: 2014Q1

REPORT INFORMATION
  Report Type: Report from Study
  Country: BR (occurrence: BR)
  Receive Date: 20131217
  Receipt Date: 20140227
  Transmission Date: 20141002
  Serious: Yes (Hospitalization)
  Sender: FDA-Public Use
  Company Number: BR-ROCHE-1319348

PATIENT
  Sex: Female
  Weight: 70 kg

DRUGS (6)
  1. ACTEMRA [Suspect]
     Indication: RHEUMATOID ARTHRITIS
     Dosage: LATEST INFUSION ON 01/NOV/2013
     Route: 065
     Dates: start: 20111202
  2. AAS [Concomitant]
     Route: 065
  3. CYMBALTA [Concomitant]
     Route: 065
  4. ROSUVASTATIN [Concomitant]
     Route: 065
  5. PANTOPRAZOLE [Concomitant]
     Route: 065
  6. DORFLEX [Concomitant]
     Indication: PAIN
     Route: 065

REACTIONS (1)
  - Cataract [Recovered/Resolved]
